FAERS Safety Report 18706436 (Version 2)
Quarter: 2021Q1

REPORT INFORMATION
  Report Type: Report from Study
  Country: US (occurrence: US)
  Receive Date: 20210106
  Receipt Date: 20210112
  Transmission Date: 20210419
  Serious: No
  Sender: FDA-Public Use
  Company Number: US-KYOWAKIRIN-2020BKK022919

PATIENT

DRUGS (1)
  1. CRYSVITA [Suspect]
     Active Substance: BUROSUMAB-TWZA
     Indication: HEREDITARY HYPOPHOSPHATAEMIC RICKETS
     Dosage: UNK, 1X/4 WEEKS
     Route: 065
     Dates: start: 20200214

REACTIONS (1)
  - Product dose omission issue [Unknown]

NARRATIVE: CASE EVENT DATE: 20201221
